FAERS Safety Report 19657265 (Version 1)
Quarter: 2021Q3

REPORT INFORMATION
  Report Type: Spontaneous
  Country: CN (occurrence: CN)
  Receive Date: 20210804
  Receipt Date: 20210804
  Transmission Date: 20211014
  Serious: Yes (Hospitalization)
  Sender: FDA-Public Use
  Company Number: CN-EISAI MEDICAL RESEARCH-EC-2021-097137

PATIENT
  Age: 48 Year
  Sex: Male
  Weight: 76.3 kg

DRUGS (5)
  1. COLLOIDAL BISMUTH PECTIN [Concomitant]
     Active Substance: BISMUTH
     Indication: ANTACID THERAPY
     Route: 048
     Dates: start: 20191228, end: 20200110
  2. AMOXICILLIN. [Suspect]
     Active Substance: AMOXICILLIN
     Indication: HELICOBACTER INFECTION
     Route: 048
     Dates: start: 20191228, end: 20200110
  3. RABEPRAZOLE [Suspect]
     Active Substance: RABEPRAZOLE
     Indication: ANTACID THERAPY
     Route: 048
     Dates: start: 20191228, end: 20200110
  4. COMPOUND GLYCYRRHIZIN [Concomitant]
     Indication: LIVER DISORDER
     Route: 065
     Dates: start: 20191228
  5. CLARITHROMYCIN. [Suspect]
     Active Substance: CLARITHROMYCIN
     Indication: HELICOBACTER INFECTION
     Route: 048
     Dates: start: 20191228, end: 20200110

REACTIONS (1)
  - Rash erythematous [Recovered/Resolved]

NARRATIVE: CASE EVENT DATE: 20200110
